FAERS Safety Report 6835872-4 (Version None)
Quarter: 2010Q3

REPORT INFORMATION
  Report Type: 
  Country: None (occurrence: None)
  Receive Date: 20100712
  Receipt Date: 20100712
  Transmission Date: 20110219
  Serious: Yes (Hospitalization)
  Sender: FDA-Public Use
  Company Number: None

PATIENT
  Age: 43 Year
  Sex: Male
  Weight: 81.6475 kg

DRUGS (2)
  1. CYMBALTA [Suspect]
     Indication: FIBROMYALGIA
     Dosage: 120 QHS PO
     Route: 048
     Dates: start: 20100401, end: 20100709
  2. TRAMADOL 50 [Suspect]
     Indication: PAIN
     Dosage: 50 QHS PO
     Route: 048
     Dates: start: 20100401, end: 20100709

REACTIONS (11)
  - AGGRESSION [None]
  - ANGER [None]
  - ANXIETY [None]
  - CONFUSIONAL STATE [None]
  - DEPRESSION [None]
  - HEAD INJURY [None]
  - IRRITABILITY [None]
  - LIBIDO DECREASED [None]
  - SEXUAL DYSFUNCTION [None]
  - SUICIDAL BEHAVIOUR [None]
  - UNEVALUABLE EVENT [None]
